FAERS Safety Report 6854933-7 (Version None)
Quarter: 2010Q3

REPORT INFORMATION
  Report Type: 
  Country: None (occurrence: None)
  Receive Date: 20100717
  Receipt Date: 20080303
  Transmission Date: 20110219
  Serious: Yes (Other)
  Sender: FDA-Public Use
  Company Number: US-PFIZER INC-2008003205

PATIENT
  Sex: Female
  Weight: 84.5 kg

DRUGS (2)
  1. CHANTIX [Suspect]
     Indication: SMOKING CESSATION THERAPY
     Dates: start: 20070725, end: 20071101
  2. LIPITOR [Concomitant]

REACTIONS (8)
  - ANXIETY [None]
  - CHEST PAIN [None]
  - DEPRESSION [None]
  - DYSPNOEA [None]
  - FATIGUE [None]
  - NAIL DISORDER [None]
  - PAIN IN JAW [None]
  - TYPE 2 DIABETES MELLITUS [None]
